FAERS Safety Report 16647306 (Version 8)
Quarter: 2022Q2

REPORT INFORMATION
  Report Type: Spontaneous
  Country: US (occurrence: US)
  Receive Date: 20190730
  Receipt Date: 20220502
  Transmission Date: 20220720
  Serious: No
  Sender: FDA-Public Use
  Company Number: US-PFIZER INC-2019315024

PATIENT
  Age: 83 Year
  Sex: Female
  Weight: 88 kg

DRUGS (5)
  1. LYRICA [Suspect]
     Active Substance: PREGABALIN
     Indication: Neuropathy peripheral
     Dosage: 50 MG, 1X/DAY (ONCE EVERY NIGHT BEFORE BED)
     Route: 048
     Dates: start: 201812, end: 20190712
  2. LYRICA [Suspect]
     Active Substance: PREGABALIN
     Indication: Pain
     Dosage: 50 MG, 1X/DAY (1 PILL A DAY)
     Route: 048
     Dates: start: 201812
  3. LYRICA [Suspect]
     Active Substance: PREGABALIN
     Dosage: 100 MG, 1X/DAY
  4. LYRICA [Suspect]
     Active Substance: PREGABALIN
     Dosage: 75 MG, 1X/DAY
     Route: 048
  5. LEVOTHYROXINE [Concomitant]
     Active Substance: LEVOTHYROXINE
     Indication: Thyroid disorder
     Dosage: 88 MG, 1X/DAY (ONCE A DAY IN THE MORNING ON AN EMPTY STOMACH)
     Route: 048
     Dates: start: 1980

REACTIONS (6)
  - Malaise [Unknown]
  - Herpes zoster [Not Recovered/Not Resolved]
  - Condition aggravated [Not Recovered/Not Resolved]
  - Peripheral swelling [Unknown]
  - Hypoacusis [Unknown]
  - Weight decreased [Unknown]

NARRATIVE: CASE EVENT DATE: 20190701
